FAERS Safety Report 6392286-1 (Version None)
Quarter: 2009Q4

REPORT INFORMATION
  Report Type: 
  Country: None (occurrence: None)
  Receive Date: 20091005
  Receipt Date: 20090929
  Transmission Date: 20100525
  Serious: Yes (Death, Life-Threatening, Hospitalization, Other)
  Sender: FDA-Public Use
  Company Number: 2009US003184

PATIENT
  Age: 17 Year
  Sex: Male

DRUGS (24)
  1. AMBISOME [Suspect]
     Indication: BRONCHOPULMONARY ASPERGILLOSIS
     Dosage: 200 MG, UID/QD, IV DRIP
     Route: 041
     Dates: start: 20070710, end: 20070820
  2. CELLCEPT [Concomitant]
  3. PREDONINE (PREDNISOLONE SODIUM SUCCINATE) [Concomitant]
  4. IMMUNE GLOBULIN INTRAVENOUS (HUMAN) [Concomitant]
  5. CHLOR-TRIMETON [Concomitant]
  6. LASIX [Concomitant]
  7. GASTER [Concomitant]
  8. VICCLOX MEIJI (ACICLOVIR) [Concomitant]
  9. POSTERIAN [Concomitant]
  10. LOXONIN (LOXOPROFEN SODIUM) [Concomitant]
  11. SULFAMETHOXAZOLE AND TRIMETHOPRIM [Concomitant]
  12. VFEND [Concomitant]
  13. MUCODYNE (CARBOCISTEINE) [Concomitant]
  14. LEUKOPROL [Concomitant]
  15. ASTOMIN (DIMEMORFAN PHOSPHATE) [Concomitant]
  16. CLARITHROMYCIN [Concomitant]
  17. ANCOTIL (FLUCYTOSINE) [Concomitant]
  18. GANCICLOVIR [Concomitant]
  19. PHELLOBERIN A (BERBERINE HYDROCHLORIDE) [Concomitant]
  20. NEU-UP (NARTOGRASTIM) [Concomitant]
  21. BROACT (CEFPIROME SULFATE) [Concomitant]
  22. DOPAMINE HYDROCHLORIDE [Concomitant]
  23. DOBUTAMINE HCL [Concomitant]
  24. NOR-ADRENALINE (NOREPINEPHRINE HYDROCHLORIDE) [Concomitant]

REACTIONS (9)
  - ALANINE AMINOTRANSFERASE INCREASED [None]
  - ANAEMIA [None]
  - ASPARTATE AMINOTRANSFERASE INCREASED [None]
  - BLOOD BILIRUBIN INCREASED [None]
  - BLOOD CREATININE INCREASED [None]
  - BLOOD UREA INCREASED [None]
  - HYPOKALAEMIA [None]
  - PLATELET COUNT DECREASED [None]
  - WHITE BLOOD CELL COUNT DECREASED [None]
